FAERS Safety Report 7964830-1 (Version None)
Quarter: 2011Q4

REPORT INFORMATION
  Report Type: 
  Country: None (occurrence: None)
  Receive Date: 20111208
  Receipt Date: 20111130
  Transmission Date: 20120403
  Serious: Yes (Other)
  Sender: FDA-Public Use
  Company Number: PHEH2011US010617

PATIENT
  Sex: Female

DRUGS (7)
  1. ESTROGENS CONJUGATED [Suspect]
  2. SYNTHROID [Concomitant]
     Dosage: 112 MG, UNK
  3. SYNTHROID [Concomitant]
     Dosage: 125 MG, UNK
  4. VIVELLE-DOT [Suspect]
     Dosage: 0.5 MG, UNK
     Route: 062
  5. BYSTOLIC [Concomitant]
     Indication: HYPERTENSION
     Dosage: 2.5 MG, QD
  6. VIVELLE-DOT [Suspect]
     Dosage: 0.0375 MG, EVERY 2 DAYS
     Route: 062
  7. AMBIENT CPR [Concomitant]
     Indication: SLEEP DISORDER

REACTIONS (13)
  - NAUSEA [None]
  - HEADACHE [None]
  - ANXIETY [None]
  - ALOPECIA [None]
  - THYROID DISORDER [None]
  - BREAST PAIN [None]
  - INFLUENZA LIKE ILLNESS [None]
  - HOT FLUSH [None]
  - BREAST TENDERNESS [None]
  - INAPPROPRIATE SCHEDULE OF DRUG ADMINISTRATION [None]
  - MALAISE [None]
  - MUSCLE SPASMS [None]
  - PAIN [None]
